FAERS Safety Report 7105265-3 (Version None)
Quarter: 2010Q4

REPORT INFORMATION
  Report Type: 
  Country: None (occurrence: None)
  Receive Date: 20101110
  Receipt Date: 20101028
  Transmission Date: 20110411
  Serious: Yes (Hospitalization)
  Sender: FDA-Public Use
  Company Number: 2010-1724

PATIENT
  Age: 11 Year
  Sex: Male
  Weight: 29 kg

DRUGS (3)
  1. INCRELEX [Suspect]
     Indication: INSULIN-LIKE GROWTH FACTOR DECREASED
     Dosage: 33 UNITS TWICE DAILY (33 UNITS), SUBCUTANEOUS
     Route: 058
     Dates: start: 20080409, end: 20080619
  2. INCRELEX [Suspect]
     Indication: INSULIN-LIKE GROWTH FACTOR DECREASED
     Dosage: 33 UNITS TWICE DAILY (33 UNITS), SUBCUTANEOUS
     Route: 058
     Dates: start: 20081101
  3. CONCERTA [Concomitant]

REACTIONS (10)
  - DIPLOPIA [None]
  - HEADACHE [None]
  - INTRACRANIAL PRESSURE INCREASED [None]
  - MIGRAINE [None]
  - MUSCLE STRAIN [None]
  - NUCHAL RIGIDITY [None]
  - PAPILLOEDEMA [None]
  - STRABISMUS [None]
  - VISION BLURRED [None]
  - VOMITING [None]
